FAERS Safety Report 8980076 (Version 3)
Quarter: 2013Q3

REPORT INFORMATION
  Report Type: Report from Study
  Country: BR (occurrence: BR)
  Receive Date: 20121221
  Receipt Date: 20130904
  Transmission Date: 20140515
  Serious: Yes (Hospitalization)
  Sender: FDA-Public Use
  Company Number: PHHY2012BR117096

PATIENT
  Sex: Female
  Weight: 45 kg

DRUGS (3)
  1. EXELON PATCH [Suspect]
     Indication: DEMENTIA ALZHEIMER^S TYPE
     Dosage: 4.6 MG, ONE PATCH PER DAY
     Route: 062
  2. EXELON PATCH [Suspect]
     Dosage: 9.5 MG, ONE PATCH PER DAY
     Route: 062
  3. EXELON PATCH [Suspect]
     Dosage: 4.6 MG, ONE PATCH PER DAY
     Route: 062

REACTIONS (7)
  - Feeling hot [Recovered/Resolved]
  - Pyrexia [Recovered/Resolved]
  - Dizziness [Recovered/Resolved]
  - Nausea [Recovered/Resolved]
  - Vomiting [Recovered/Resolved]
  - Asthenia [Recovered/Resolved]
  - Diarrhoea [Recovered/Resolved]
